FAERS Safety Report 15180299 (Version 1)
Quarter: 2018Q4

REPORT INFORMATION
  Report Type: Spontaneous
  Country: US (occurrence: US)
  Receive Date: 20180723
  Receipt Date: 20180723
  Transmission Date: 20190204
  Serious: No
  Sender: FDA-Public Use
  Company Number: US-ASCENT PHARMACEUTICALS, INC.-2052567

PATIENT
  Age: 59 Year
  Sex: Male
  Weight: 90.46 kg

DRUGS (10)
  1. OXYCODONE AND ACETAMINOPHEN [Suspect]
     Active Substance: ACETAMINOPHEN\OXYCODONE HYDROCHLORIDE
     Indication: BACK PAIN
     Route: 048
     Dates: start: 20180501
  2. ALLOPURINOL. [Concomitant]
     Active Substance: ALLOPURINOL
  3. NASAL SPRAY [Concomitant]
     Active Substance: UNSPECIFIED INGREDIENT
  4. VOLTAREN [Concomitant]
     Active Substance: DICLOFENAC SODIUM
     Route: 061
  5. ASPIRIN. [Concomitant]
     Active Substance: ASPIRIN
  6. PRAVASTATIN. [Concomitant]
     Active Substance: PRAVASTATIN
  7. FLONASE [Concomitant]
     Active Substance: FLUTICASONE PROPIONATE
  8. MOTRIN [Concomitant]
     Active Substance: IBUPROFEN
  9. CARTIA XT [Concomitant]
     Active Substance: DILTIAZEM HYDROCHLORIDE
  10. TERAZOSIN [Concomitant]
     Active Substance: TERAZOSIN\TERAZOSIN HYDROCHLORIDE

REACTIONS (1)
  - Pain in extremity [Unknown]

NARRATIVE: CASE EVENT DATE: 20180501
